FAERS Safety Report 8881535 (Version 2)
Quarter: 2013Q1

REPORT INFORMATION
  Report Type: Spontaneous
  Country: JP (occurrence: JP)
  Receive Date: 20121101
  Receipt Date: 20130104
  Transmission Date: 20140127
  Serious: Yes (Life-Threatening, Other)
  Sender: FDA-Public Use
  Company Number: JP-ROCHE-1151102

PATIENT
  Age: 76 Year
  Sex: Male
  Weight: 42 kg

DRUGS (7)
  1. AVASTIN [Suspect]
     Indication: COLON CANCER RECURRENT
     Route: 041
     Dates: start: 20120731, end: 20120814
  2. ELPLAT [Suspect]
     Indication: COLON CANCER RECURRENT
     Route: 065
     Dates: start: 20120731, end: 20120814
  3. LEVOFOLINATE [Suspect]
     Indication: COLON CANCER RECURRENT
     Route: 065
     Dates: start: 20120731, end: 20120814
  4. 5-FU [Suspect]
     Indication: COLON CANCER RECURRENT
     Route: 065
     Dates: start: 20120731, end: 20120814
  5. 5-FU [Suspect]
     Route: 065
     Dates: start: 20120731, end: 20120814
  6. DEXART [Concomitant]
     Indication: COLON CANCER RECURRENT
     Route: 065
     Dates: start: 20120731, end: 20120814
  7. ALOXI [Concomitant]
     Indication: COLON CANCER RECURRENT
     Route: 065
     Dates: start: 20120731, end: 20120814

REACTIONS (5)
  - Vascular pseudoaneurysm [Not Recovered/Not Resolved]
  - Device related infection [Recovered/Resolved]
  - Sepsis [Recovered/Resolved]
  - Extradural abscess [Recovered/Resolved]
  - Abscess [Recovered/Resolved]
